FAERS Safety Report 18848481 (Version 6)
Quarter: 2024Q2

REPORT INFORMATION
  Report Type: Spontaneous
  Country: US (occurrence: US)
  Receive Date: 20210204
  Receipt Date: 20240430
  Transmission Date: 20240716
  Serious: Yes (Death, Hospitalization, Other)
  Sender: FDA-Public Use
  Company Number: US-TEVA-2021-US-1876741

PATIENT
  Age: 48 Year
  Sex: Female
  Weight: 69.3 kg

DRUGS (35)
  1. VALSARTAN [Suspect]
     Active Substance: VALSARTAN
     Indication: Hypertension
     Dosage: DOSAGE TEXT: 160MG
     Route: 065
     Dates: start: 20150409, end: 20151212
  2. ZOLPIDEM [Concomitant]
     Active Substance: ZOLPIDEM TARTRATE
     Indication: Insomnia
     Dosage: DOSAGE TEXT: ONGOING?10 MG 1 BY MOUTH ONCE A DAY
     Route: 048
     Dates: start: 2008
  3. MONTELUKAST SODIUM [Concomitant]
     Active Substance: MONTELUKAST SODIUM
     Indication: Hypersensitivity
     Dosage: DOSAGE TEXT: ONGOING EVERY EVENING
     Route: 048
  4. ACETAMINOPHEN [Concomitant]
     Active Substance: ACETAMINOPHEN
     Indication: Pain
     Dosage: DOSAGE TEXT: 325MG AS NEEDED , ONGOING
  5. PANTOPRAZOLE [Concomitant]
     Active Substance: PANTOPRAZOLE
     Indication: Gastrooesophageal reflux disease
     Dosage: DOSAGE TEXT: ONGOING
     Dates: start: 2014
  6. VITAMIN D [Concomitant]
     Active Substance: VITAMIN D NOS
     Indication: Vitamin D deficiency
     Dosage: DOSAGE TEXT: 50,000 UNITS ONCE A DAY ,ONGOING?50,000 UNITS ONCE A WEEK
     Dates: start: 2013
  7. LOSARTAN [Concomitant]
     Active Substance: LOSARTAN
     Indication: Hypertension
     Dosage: DOSAGE TEXT: 50 MG 1 BY MOUTH ONCE A DAY
     Route: 048
  8. LOMOTIL [Concomitant]
     Active Substance: ATROPINE SULFATE\DIPHENOXYLATE HYDROCHLORIDE
     Indication: Diarrhoea
     Dosage: DOSAGE TEXT: 2.5 -0.025 MG 1-2 BY MOUTH EVERY 4-6 HOURS
     Route: 048
  9. ATORVASTATIN [Concomitant]
     Active Substance: ATORVASTATIN
     Route: 048
  10. LEVETIRACETAM [Concomitant]
     Active Substance: LEVETIRACETAM
     Dosage: DOSAGE TEXT: 500 MG 1 BY MOUTH TWICE A DAY
     Route: 048
  11. LOVENOX [Concomitant]
     Active Substance: ENOXAPARIN SODIUM
     Dosage: DOSAGE TEXT: 60 MG/0.6 ML TWICE A DAY
     Route: 058
  12. MYCOPHENOLATE MOFETIL [Concomitant]
     Active Substance: MYCOPHENOLATE MOFETIL
     Dosage: DOSAGE TEXT: 500 MG 1 BY MOUTH TWICE A DAY
     Route: 048
  13. LIDOCAINE VISCOUS [Concomitant]
     Active Substance: LIDOCAINE HYDROCHLORIDE
     Dosage: DOSAGE TEXT: 2% 10-15 BY MOUTH EVERY 6 HOURS
     Route: 048
  14. PLAQUENIL [Concomitant]
     Active Substance: HYDROXYCHLOROQUINE SULFATE
     Dosage: DOSAGE TEXT: 200 MG 1 BY MOUTH TWICE A DAY, AFTER MEALS
     Route: 048
     Dates: end: 20141127
  15. PROTONIX [Concomitant]
     Active Substance: PANTOPRAZOLE SODIUM
     Dosage: DOSAGE TEXT: 40 MG 1 BY MOUTH ONCE A DAY DELAYED RELEASE TABLET
     Route: 048
  16. PROMETHAZINE [Concomitant]
     Active Substance: PROMETHAZINE HYDROCHLORIDE
     Indication: Nausea
     Dosage: DOSAGE TEXT: 25 MG 6-8 HOURS AS NEEDED
     Route: 065
  17. AZITHROMYCIN [Concomitant]
     Active Substance: AZITHROMYCIN
     Dosage: DOSAGE TEXT: 250 MG
     Route: 065
  18. CLOBETASOL [Concomitant]
     Active Substance: CLOBETASOL
     Dosage: DOSAGE TEXT: 0.05% TOPICAL CREAM
     Route: 065
  19. FAMOTIDINE [Concomitant]
     Active Substance: FAMOTIDINE
     Dosage: DOSAGE TEXT: 20 MG
     Route: 065
  20. HYDROXYCHLOROQUINE [Concomitant]
     Active Substance: HYDROXYCHLOROQUINE
     Dosage: DOSAGE TEXT: 200 MG TABLET
     Route: 048
  21. LANSOPRAZOLE [Concomitant]
     Active Substance: LANSOPRAZOLE
     Dosage: DOSAGE TEXT: 30 MG (PREVACID DR)
     Route: 048
  22. PHENYTOIN SODIUM [Concomitant]
     Active Substance: PHENYTOIN SODIUM
     Dosage: DOSAGE TEXT: 100 MG (DILANTIN)
     Route: 048
  23. CODEINE\PROMETHAZINE [Concomitant]
     Active Substance: CODEINE\PROMETHAZINE
     Indication: Cough
     Dosage: DOSAGE TEXT: 6.25-10 MG/5ML SYRUP TAKE ONE TEASPOON BY MOUTH EVERY SIX HOURS AS NEEDED FOR COUGH
     Route: 048
  24. ZITHROMAX [Concomitant]
     Active Substance: AZITHROMYCIN DIHYDRATE
     Dosage: DOSAGE TEXT: 250 MG
     Route: 065
  25. VALSARTAN [Suspect]
     Active Substance: VALSARTAN
     Indication: Hypertension
     Dosage: DOSAGE TEXT: 160MG
     Route: 065
     Dates: start: 20151212, end: 20180824
  26. Icar-c-plus [Concomitant]
     Dosage: DOSAGE TEXT: 100-250-0.025-L MG
     Route: 048
  27. DILANTIN [Concomitant]
     Active Substance: PHENYTOIN
     Dosage: DOSAGE TEXT: 100 MG
     Route: 048
  28. SYMBICORT [Concomitant]
     Active Substance: BUDESONIDE\FORMOTEROL FUMARATE DIHYDRATE
     Dosage: DOSAGE TEXT: 160-4.5 MCG/ACT AERO
     Route: 048
  29. PROAIR HFA [Concomitant]
     Active Substance: ALBUTEROL SULFATE
     Dosage: DOSAGE TEXT: 108 (90 BASE)MCG/ ACT 2 PUFFS BY MOUTH THREE TIMES A DAY + AS NEEDED
     Route: 048
  30. SINGULAIR [Concomitant]
     Active Substance: MONTELUKAST SODIUM
     Dosage: DOSAGE TEXT: 10 MG TAKE ONE TABLET BY MOUTH EVERY DAY IN THE EVENING
     Route: 048
  31. FOSAMAX [Concomitant]
     Active Substance: ALENDRONATE SODIUM
     Dosage: DOSAGE TEXT: 70 MG
     Route: 048
  32. PREVACID [Concomitant]
     Active Substance: LANSOPRAZOLE
     Route: 048
  33. CHILDRENS CHEWABLE ASPIRIN [Concomitant]
     Active Substance: ASPIRIN
     Dosage: DOSAGE TEXT: DAILY
     Route: 048
  34. HYDROCODONE [Concomitant]
     Active Substance: HYDROCODONE
     Indication: Pain
     Dosage: DOSAGE TEXT: 7.5-32MG AS NEEDED?10 MG
     Route: 048
     Dates: start: 2010, end: 2018
  35. AMLODIPINE BESYLATE [Concomitant]
     Active Substance: AMLODIPINE BESYLATE
     Indication: Hypertension
     Dosage: DOSAGE TEXT: 10 MG 1 BY MOUTH ONCE A DAY
     Route: 048
     Dates: end: 2019

REACTIONS (6)
  - Death [Fatal]
  - Colon cancer [Not Recovered/Not Resolved]
  - Hepatic cancer [Not Recovered/Not Resolved]
  - Metastases to the respiratory system [Not Recovered/Not Resolved]
  - Gastrointestinal carcinoma in situ [Not Recovered/Not Resolved]
  - Cholangiocarcinoma [Not Recovered/Not Resolved]
